FAERS Safety Report 4471908-6 (Version None)
Quarter: 2004Q4

REPORT INFORMATION
  Report Type: 
  Country: None (occurrence: None)
  Receive Date: 20041006
  Receipt Date: 20040924
  Transmission Date: 20050328
  Serious: Yes (Disabling, Other)
  Sender: FDA-Public Use
  Company Number: 2004052561

PATIENT
  Sex: Male
  Weight: 88.905 kg

DRUGS (7)
  1. DILANTIN KAPSEAL [Suspect]
     Indication: CONVULSION
     Dosage: ORAL
     Route: 048
     Dates: start: 19600101, end: 20020101
  2. DOXAZOSIN MESYLATE [Concomitant]
  3. PREDNISONE [Concomitant]
  4. LEVOTHYROXIN SODIUM (LEVOTHYROXIN SODIUM) [Concomitant]
  5. AZATHIOPRINE [Concomitant]
  6. WARFARIN SODIUM [Concomitant]
  7. VALDECOXIB [Concomitant]

REACTIONS (3)
  - ARTHRITIS [None]
  - DRUG INEFFECTIVE [None]
  - LUPUS-LIKE SYNDROME [None]
